FAERS Safety Report 25713442 (Version 3)
Quarter: 2025Q4

REPORT INFORMATION
  Report Type: Report from Study
  Country: US (occurrence: US)
  Receive Date: 20250822
  Receipt Date: 20251008
  Transmission Date: 20260117
  Serious: No
  Sender: SANDOZ
  Company Number: US-SANDOZ-SDZ2025US059727

PATIENT
  Age: 15 Year
  Sex: Male

DRUGS (6)
  1. OMNITROPE [Suspect]
     Active Substance: SOMATROPIN
     Dosage: 4 MG, QD
     Route: 058
     Dates: start: 20250930, end: 20250930
  2. OMNITROPE [Suspect]
     Active Substance: SOMATROPIN
     Dosage: 4 MG, QD
     Route: 058
     Dates: start: 20250930, end: 20250930
  3. OMNITROPE [Suspect]
     Active Substance: SOMATROPIN
     Indication: Short stature
     Dosage: 4 MG, QD
     Route: 058
     Dates: start: 20250813
  4. OMNITROPE [Suspect]
     Active Substance: SOMATROPIN
     Indication: Short stature
     Dosage: 4 MG, QD
     Route: 058
     Dates: start: 20250813
  5. OMNITROPE [Suspect]
     Active Substance: SOMATROPIN
     Dosage: 4 MG, QD
     Route: 058
     Dates: start: 20250808
  6. OMNITROPE [Suspect]
     Active Substance: SOMATROPIN
     Dosage: 4 MG, QD
     Route: 058
     Dates: start: 20250808

REACTIONS (6)
  - Incorrect dose administered by device [Unknown]
  - Drug dose omission by device [Unknown]
  - Device defective [Unknown]
  - Device leakage [Unknown]
  - Product use issue [Unknown]
  - Device malfunction [Unknown]

NARRATIVE: CASE EVENT DATE: 20250813
